FAERS Safety Report 18278101 (Version 1)
Quarter: 2020Q3

REPORT INFORMATION
  Report Type: Spontaneous
  Country: NZ (occurrence: NZ)
  Receive Date: 20200917
  Receipt Date: 20200917
  Transmission Date: 20201103
  Serious: Yes (Hospitalization, Other)
  Sender: FDA-Public Use
  Company Number: NZ-MEITHEAL PHARMACEUTICALS-2020MHL00060

PATIENT
  Age: 70 Year
  Sex: Female

DRUGS (4)
  1. VITAMIN B12 [Concomitant]
     Active Substance: CYANOCOBALAMIN
     Route: 065
  2. FOLIC ACID. [Concomitant]
     Active Substance: FOLIC ACID
     Route: 065
  3. PEMETREXED. [Suspect]
     Active Substance: PEMETREXED
     Indication: MESOTHELIOMA
     Route: 065
  4. CARBOPLATIN. [Suspect]
     Active Substance: CARBOPLATIN
     Indication: MESOTHELIOMA
     Route: 065

REACTIONS (7)
  - Seizure [Unknown]
  - Pulmonary embolism [Unknown]
  - Nausea [Unknown]
  - Toxic epidermal necrolysis [Recovering/Resolving]
  - Confusional state [Unknown]
  - Pancytopenia [Unknown]
  - Neutropenia [Unknown]
